FAERS Safety Report 5110420-8 (Version None)
Quarter: 2006Q3

REPORT INFORMATION
  Report Type: 
  Country: None (occurrence: None)
  Receive Date: 20060921
  Receipt Date: 20060215
  Transmission Date: 20061208
  Serious: Yes (Hospitalization, Other)
  Sender: FDA-Public Use
  Company Number: PHHO2006JP03003

PATIENT
  Age: 76 Year
  Sex: Female

DRUGS (11)
  1. LOCHOL [Suspect]
     Indication: HYPERCHOLESTEROLAEMIA
     Dosage: 20 MG, QD
     Route: 048
     Dates: start: 20001121, end: 20010527
  2. LOCHOL [Suspect]
     Dosage: 60 MG, QD
     Route: 048
     Dates: start: 20010528, end: 20040915
  3. LOCHOL [Suspect]
     Dosage: 30 MG, QD
     Route: 048
     Dates: start: 20040916, end: 20051202
  4. COVERSYL [Concomitant]
     Indication: HYPERTENSION
     Dates: end: 20051202
  5. ATELEC [Concomitant]
     Indication: HYPERTENSION
     Dates: end: 20051202
  6. PANALDINE [Concomitant]
     Indication: CEREBRAL INFARCTION
     Dates: end: 20051202
  7. LENDORMIN [Concomitant]
     Indication: INSOMNIA
  8. SELBEX [Concomitant]
     Dates: end: 20010212
  9. MAGTECT [Concomitant]
     Indication: REFLUX OESOPHAGITIS
     Dates: end: 20010507
  10. TENORMIN [Concomitant]
     Indication: HYPERTENSION
     Dates: end: 20051202
  11. AMOBAN [Concomitant]
     Dates: end: 20051202

REACTIONS (1)
  - ORAL SURGERY [None]
